FAERS Safety Report 14810671 (Version 2)
Quarter: 2018Q3

REPORT INFORMATION
  Report Type: Report from Study
  Country: US (occurrence: US)
  Receive Date: 20180425
  Receipt Date: 20180719
  Transmission Date: 20181010
  Serious: No
  Sender: FDA-Public Use
  Company Number: US-AMGEN-USASL2018027706

PATIENT
  Age: 79 Year
  Sex: Female

DRUGS (2)
  1. REPATHA [Suspect]
     Active Substance: EVOLOCUMAB
     Indication: BLOOD CHOLESTEROL INCREASED
  2. REPATHA [Suspect]
     Active Substance: EVOLOCUMAB
     Indication: LOW DENSITY LIPOPROTEIN INCREASED
     Dosage: 140 MG, Q2WK
     Route: 065
     Dates: start: 20180222

REACTIONS (7)
  - Pruritus [Unknown]
  - Dyspnoea [Unknown]
  - Product storage error [Unknown]
  - Cystitis [Unknown]
  - Productive cough [Unknown]
  - Influenza like illness [Unknown]
  - Wheezing [Unknown]

NARRATIVE: CASE EVENT DATE: 201802
